FAERS Safety Report 4272898-1 (Version None)
Quarter: 2004Q1

REPORT INFORMATION
  Report Type: 
  Country: None (occurrence: None)
  Receive Date: 20040114
  Receipt Date: 20040102
  Transmission Date: 20041129
  Serious: Yes (Other)
  Sender: FDA-Public Use
  Company Number: US-JNJFOC-20040100580

PATIENT
  Age: 79 Year
  Sex: Male
  Weight: 92.5338 kg

DRUGS (1)
  1. REMICADE [Suspect]
     Dosage: INTRAVENOUS
     Route: 042
     Dates: start: 20030401

REACTIONS (2)
  - IMMUNE SYSTEM DISORDER [None]
  - PAIN [None]
